FAERS Safety Report 24601682 (Version 1)
Quarter: 2024Q4

REPORT INFORMATION
  Report Type: Report from Study
  Country: US (occurrence: US)
  Receive Date: 20241111
  Receipt Date: 20241111
  Transmission Date: 20250114
  Serious: Yes (Other)
  Sender: AUROBINDO
  Company Number: US-AUROBINDO-AUR-APL-2022-020725

PATIENT
  Sex: Male

DRUGS (2)
  1. BELINOSTAT [Suspect]
     Active Substance: BELINOSTAT
     Indication: Acute myeloid leukaemia
     Dosage: 10950 MILLIGRAM
     Route: 065
     Dates: start: 20220509
  2. PEVONEDISTAT HYDROCHLORIDE [Suspect]
     Active Substance: PEVONEDISTAT HYDROCHLORIDE
     Indication: Acute myeloid leukaemia
     Dosage: 328.5 MILLIGRAM
     Route: 065
     Dates: start: 20220509

REACTIONS (16)
  - Hypokalaemia [Unknown]
  - Aspartate aminotransferase increased [Unknown]
  - Blood bilirubin increased [Unknown]
  - Gastrooesophageal reflux disease [Unknown]
  - Insomnia [Unknown]
  - Cough [Unknown]
  - Upper-airway cough syndrome [Unknown]
  - Flushing [Unknown]
  - Eye disorder [Unknown]
  - Vomiting [Unknown]
  - Dysgeusia [Unknown]
  - Dysphonia [Unknown]
  - Constipation [Unknown]
  - Fatigue [Unknown]
  - Malaise [Unknown]
  - Dizziness [Unknown]

NARRATIVE: CASE EVENT DATE: 20220510
